FAERS Safety Report 13111659 (Version 1)
Quarter: 2017Q1

REPORT INFORMATION
  Report Type: Spontaneous
  Country: AU (occurrence: AU)
  Receive Date: 20170113
  Receipt Date: 20170113
  Transmission Date: 20170428
  Serious: Yes (Other)
  Sender: FDA-Public Use
  Company Number: AU-STRIDES ARCOLAB LIMITED-2017SP000084

PATIENT

DRUGS (1)
  1. IMIQUIMOD. [Suspect]
     Active Substance: IMIQUIMOD
     Indication: BOWEN^S DISEASE
     Dosage: UNK, THRICE  A WEEK
     Route: 061

REACTIONS (6)
  - Skin depigmentation [Unknown]
  - Vertigo [Unknown]
  - Hypoacusis [Recovered/Resolved]
  - Deafness neurosensory [Recovered/Resolved]
  - Off label use [Unknown]
  - Hearing disability [Recovered/Resolved]
